FAERS Safety Report 13498506 (Version 2)
Quarter: 2017Q2

REPORT INFORMATION
  Report Type: Spontaneous
  Country: TW (occurrence: TW)
  Receive Date: 20170501
  Receipt Date: 20170615
  Transmission Date: 20170830
  Serious: Yes (Hospitalization)
  Sender: FDA-Public Use
  Company Number: TW-ACCORD-050814

PATIENT
  Age: 70 Year
  Sex: Male

DRUGS (1)
  1. QUETIAPINE. [Suspect]
     Active Substance: QUETIAPINE
     Indication: IRRITABILITY
     Dosage: AT BED TIME

REACTIONS (1)
  - Stereotypy [Recovered/Resolved]
